FAERS Safety Report 21599236 (Version 1)
Quarter: 2022Q4

REPORT INFORMATION
  Report Type: Spontaneous
  Country: US (occurrence: None)
  Receive Date: 20221114
  Receipt Date: 20221114
  Transmission Date: 20230113
  Serious: Yes (Disabling)
  Sender: FDA-Public Use
  Company Number: None

PATIENT
  Sex: Female

DRUGS (1)
  1. CAPECITABINE [Suspect]
     Active Substance: CAPECITABINE
     Dosage: OTHER QUANTITY : 1500 MG  IN MORNING  1000 MG IN EVENING?FREQUENCY : TWICE A DAY;?
     Route: 048

REACTIONS (9)
  - Anal incontinence [None]
  - Urinary incontinence [None]
  - Irritable bowel syndrome [None]
  - Diarrhoea [None]
  - Fatigue [None]
  - Memory impairment [None]
  - Hernia [None]
  - Therapy cessation [None]
  - Cerebral disorder [None]
